FAERS Safety Report 13889109 (Version 1)
Quarter: 2017Q3

REPORT INFORMATION
  Report Type: Spontaneous
  Country: US (occurrence: US)
  Receive Date: 20170822
  Receipt Date: 20170822
  Transmission Date: 20171127
  Serious: No
  Sender: FDA-Public Use
  Company Number: US-ROCHE-1173737

PATIENT
  Sex: Female

DRUGS (8)
  1. TRAZODONE [Concomitant]
     Active Substance: TRAZODONE HYDROCHLORIDE
  2. ACTEMRA [Suspect]
     Active Substance: TOCILIZUMAB
     Indication: RHEUMATOID ARTHRITIS
     Route: 042
  3. SINGULAIR [Concomitant]
     Active Substance: MONTELUKAST SODIUM
  4. PAXIL [Concomitant]
     Active Substance: PAROXETINE HYDROCHLORIDE
  5. LEVOTHYROXINE. [Concomitant]
     Active Substance: LEVOTHYROXINE
  6. SOTALOL. [Concomitant]
     Active Substance: SOTALOL
  7. CARBATROL [Concomitant]
     Active Substance: CARBAMAZEPINE
  8. WARFARIN [Concomitant]
     Active Substance: WARFARIN

REACTIONS (5)
  - Pain [Unknown]
  - Asthenia [Unknown]
  - Swelling [Unknown]
  - Myalgia [Unknown]
  - Drug ineffective [Unknown]
